FAERS Safety Report 13441407 (Version 3)
Quarter: 2020Q3

REPORT INFORMATION
  Report Type: Spontaneous
  Country: FR (occurrence: FR)
  Receive Date: 20170413
  Receipt Date: 20200716
  Transmission Date: 20201102
  Serious: Yes (Hospitalization, Other)
  Sender: FDA-Public Use
  Company Number: FR-ACCORD-050154

PATIENT
  Age: 78 Year
  Sex: Female

DRUGS (6)
  1. FLUOROURACIL ACCORD [Suspect]
     Active Substance: FLUOROURACIL
     Indication: COLORECTAL CANCER METASTATIC
     Dosage: 34TH SESSION, FIRST COURSE WAS RECEIVED ON 10?JUN?2015
     Route: 042
     Dates: start: 20170214, end: 20170214
  2. ZOPHREN [Concomitant]
     Active Substance: ONDANSETRON
     Dosage: 8 MG
  3. ZALTRAP [Suspect]
     Active Substance: ZIV-AFLIBERCEPT
     Indication: COLORECTAL CANCER METASTATIC
     Dosage: 34TH SESSION,FIRST COURSE WAS RECEIVED ON 10?JUN?2015.
     Route: 042
     Dates: start: 20170214, end: 20170214
  4. NOCTAMIDE [Concomitant]
     Active Substance: LORMETAZEPAM
     Dosage: 2 (UNKNOWN UNIT)
  5. LASILIX [Concomitant]
     Active Substance: FUROSEMIDE
     Dosage: 40 MG
  6. TRIATEC [Concomitant]
     Dosage: 5 MG

REACTIONS (2)
  - Cardiac failure [Recovered/Resolved]
  - Dyspnoea [Recovered/Resolved]

NARRATIVE: CASE EVENT DATE: 20170214
